FAERS Safety Report 7248240-0 (Version None)
Quarter: 2011Q1

REPORT INFORMATION
  Report Type: 
  Country: None (occurrence: None)
  Receive Date: 20110127
  Receipt Date: 20101215
  Transmission Date: 20110831
  Serious: Yes (Death, Hospitalization, Other)
  Sender: FDA-Public Use
  Company Number: US-BAXTER-2008BH001899

PATIENT
  Age: 20 Year
  Sex: Male
  Weight: 68 kg

DRUGS (21)
  1. HEPARIN SODIUM INJECTION [Suspect]
     Indication: THROMBOSIS PROPHYLAXIS
     Route: 058
     Dates: start: 20050101, end: 20080301
  2. CENTRUM [Concomitant]
     Indication: PRODUCT USED FOR UNKNOWN INDICATION
     Route: 065
  3. MOXIFLOXACIN [Concomitant]
     Indication: PRODUCT USED FOR UNKNOWN INDICATION
     Route: 065
     Dates: start: 20100301
  4. HEPARIN SODIUM INJECTION [Suspect]
     Route: 058
     Dates: start: 20080223, end: 20080226
  5. TYLENOL-500 [Concomitant]
     Indication: PRODUCT USED FOR UNKNOWN INDICATION
     Route: 065
  6. HEPARIN SODIUM INJECTION [Suspect]
     Route: 042
     Dates: start: 20100101
  7. PREVACID [Concomitant]
     Indication: PRODUCT USED FOR UNKNOWN INDICATION
     Route: 065
  8. MIRALAX [Concomitant]
     Indication: ABNORMAL FAECES
     Route: 065
  9. COLACE [Concomitant]
     Indication: PRODUCT USED FOR UNKNOWN INDICATION
     Route: 065
  10. HEPARIN SODIUM INJECTION [Suspect]
     Indication: DEEP VEIN THROMBOSIS
     Route: 058
     Dates: start: 20050101, end: 20080301
  11. HEPARIN SODIUM INJECTION [Suspect]
     Route: 058
     Dates: start: 20080223, end: 20080226
  12. HEPARIN SODIUM INJECTION [Suspect]
     Route: 042
     Dates: start: 20100101
  13. CEFEPIME [Concomitant]
     Indication: PRODUCT USED FOR UNKNOWN INDICATION
     Route: 065
     Dates: start: 20100301
  14. FLAGYL [Concomitant]
     Indication: PRODUCT USED FOR UNKNOWN INDICATION
     Route: 065
     Dates: start: 20100301
  15. HEPARIN SODIUM INJECTION [Suspect]
     Route: 058
     Dates: start: 20080314, end: 20080301
  16. ATIVAN [Concomitant]
     Indication: PRODUCT USED FOR UNKNOWN INDICATION
     Route: 065
  17. LOVENOX [Suspect]
     Indication: PRODUCT USED FOR UNKNOWN INDICATION
     Route: 065
     Dates: end: 20100101
  18. VANCOMYCIN [Concomitant]
     Indication: PRODUCT USED FOR UNKNOWN INDICATION
     Route: 065
     Dates: start: 20100301
  19. HEPARIN SODIUM INJECTION [Suspect]
     Route: 058
     Dates: start: 20080314, end: 20080301
  20. REGLAN [Concomitant]
     Indication: PRODUCT USED FOR UNKNOWN INDICATION
     Route: 065
  21. BENEFIBER [Concomitant]
     Indication: PRODUCT USED FOR UNKNOWN INDICATION
     Route: 065

REACTIONS (22)
  - SEPSIS [None]
  - RESPIRATORY FAILURE [None]
  - NAUSEA [None]
  - PHARYNGITIS [None]
  - BLOOD PRESSURE FLUCTUATION [None]
  - OEDEMA PERIPHERAL [None]
  - PANCYTOPENIA [None]
  - RENAL FAILURE ACUTE [None]
  - CARDIAC FAILURE CONGESTIVE [None]
  - PLATELET COUNT DECREASED [None]
  - DIABETIC KETOACIDOSIS [None]
  - FUNGAEMIA [None]
  - CHEST PAIN [None]
  - TACHYCARDIA [None]
  - COAGULOPATHY [None]
  - DEEP VEIN THROMBOSIS [None]
  - CHEST DISCOMFORT [None]
  - HYPOTENSION [None]
  - CARDIAC ARREST [None]
  - CHOKING SENSATION [None]
  - ENTEROCOCCAL BACTERAEMIA [None]
  - CLOSTRIDIAL INFECTION [None]
